FAERS Safety Report 17776154 (Version 3)
Quarter: 2020Q2

REPORT INFORMATION
  Report Type: Spontaneous
  Country: US (occurrence: US)
  Receive Date: 20200513
  Receipt Date: 20200515
  Transmission Date: 20200714
  Serious: No
  Sender: FDA-Public Use
  Company Number: US-PFIZER INC-2020190716

PATIENT
  Sex: Female

DRUGS (1)
  1. FLECTOR [Suspect]
     Active Substance: DICLOFENAC EPOLAMINE
     Indication: BURSITIS
     Dosage: UNK UNK, 2X/DAY (EVERY 12 HOURS)

REACTIONS (4)
  - Off label use [Unknown]
  - Insomnia [Unknown]
  - Skin tightness [Unknown]
  - Drug ineffective for unapproved indication [Unknown]
